FAERS Safety Report 5418864-1 (Version None)
Quarter: 2007Q3

REPORT INFORMATION
  Report Type: 
  Country: None (occurrence: None)
  Receive Date: 20070718
  Receipt Date: 20060717
  Transmission Date: 20080115
  Serious: Yes (Other)
  Sender: FDA-Public Use
  Company Number: 2006090943

PATIENT
  Age: 58 Year
  Sex: Female
  Weight: 54.4316 kg

DRUGS (2)
  1. CELEBREX [Suspect]
     Indication: INTERVERTEBRAL DISC DISORDER
     Dosage: 400 MG (200 MG, 2 IN 1 D)
     Dates: start: 20000620, end: 20050301
  2. CELEBREX [Suspect]
     Indication: JOINT INJURY
     Dosage: 400 MG (200 MG, 2 IN 1 D)
     Dates: start: 20000620, end: 20050301

REACTIONS (1)
  - CEREBROVASCULAR ACCIDENT [None]
